FAERS Safety Report 5951284-X (Version None)
Quarter: 2008Q4

REPORT INFORMATION
  Report Type: 
  Country: None (occurrence: None)
  Receive Date: 20081112
  Receipt Date: 20081112
  Transmission Date: 20090506
  Serious: Yes (Other)
  Sender: FDA-Public Use
  Company Number: None

PATIENT
  Age: 44 Year
  Sex: Female
  Weight: 83.5526 kg

DRUGS (2)
  1. LAMOTRIGINE [Suspect]
     Indication: BIPOLAR DISORDER
     Dosage: 200 MG QD PO
     Route: 048
     Dates: start: 20080917, end: 20081006
  2. LAMOTRIGINE [Suspect]
     Dosage: 100MG 2-AM, 1PM PO
     Route: 048
     Dates: start: 20081006, end: 20081111

REACTIONS (2)
  - DRUG INEFFECTIVE [None]
  - THERAPEUTIC RESPONSE UNEXPECTED WITH DRUG SUBSTITUTION [None]
